FAERS Safety Report 16867994 (Version 2)
Quarter: 2019Q3

REPORT INFORMATION
  Report Type: Spontaneous
  Country: US (occurrence: US)
  Receive Date: 20190930
  Receipt Date: 20190930
  Transmission Date: 20191005
  Serious: Yes (Hospitalization, Other)
  Sender: FDA-Public Use
  Company Number: US-SHIRE-US201931961

PATIENT
  Age: 43 Year
  Sex: Male

DRUGS (1)
  1. NATPARA (PARATHYROID HORMONE) [Suspect]
     Active Substance: PARATHYROID HORMONE
     Indication: PRODUCT USED FOR UNKNOWN INDICATION
     Dosage: 100 MICROGRAM, 1X/DAY:QD
     Route: 065
     Dates: start: 20151105

REACTIONS (4)
  - Renal impairment [Not Recovered/Not Resolved]
  - Cardiac discomfort [Recovering/Resolving]
  - Blood potassium decreased [Recovered/Resolved with Sequelae]
  - Blood calcium decreased [Recovered/Resolved with Sequelae]

NARRATIVE: CASE EVENT DATE: 20190918
